FAERS Safety Report 9788024 (Version 1)
Quarter: 2013Q4

REPORT INFORMATION
  Report Type: Spontaneous
  Country: US (occurrence: None)
  Receive Date: 20131227
  Receipt Date: 20131227
  Transmission Date: 20140711
  Serious: Yes (Life-Threatening, Hospitalization)
  Sender: FDA-Public Use
  Company Number: None

PATIENT
  Age: 76 Year
  Sex: Female
  Weight: 71.2 kg

DRUGS (18)
  1. ELIQUIS (APIXABAN) [Suspect]
     Indication: ATRIAL FIBRILLATION
     Route: 048
  2. AMLODIPINE [Concomitant]
  3. ASPIRIN [Concomitant]
  4. CLARITIN [Concomitant]
  5. FENOFIBRATE [Concomitant]
  6. FERROUS SULFATE [Concomitant]
  7. ISOSORBIDE MONONITRATE [Concomitant]
  8. METOPROLOL [Concomitant]
  9. NEURONTIN [Concomitant]
  10. PROTONIX [Concomitant]
  11. POTASSIUM [Concomitant]
  12. PRAVASTATIN [Concomitant]
  13. RANEXA [Concomitant]
  14. SYNTHROID [Concomitant]
  15. VITAMIN D3 [Concomitant]
  16. HOME OXYGEN [Concomitant]
  17. NEBULIZERS [Concomitant]
  18. LASIX [Concomitant]

REACTIONS (6)
  - Fall [None]
  - Haemoglobin decreased [None]
  - Haematocrit decreased [None]
  - Hypotension [None]
  - Dyspnoea [None]
  - Asthenia [None]
